FAERS Safety Report 15108902 (Version 1)
Quarter: 2018Q3

REPORT INFORMATION
  Report Type: Report from Study
  Country: None (occurrence: AU)
  Receive Date: 20180705
  Receipt Date: 20180705
  Transmission Date: 20181010
  Serious: Yes (Hospitalization)
  Sender: FDA-Public Use
  Company Number: AU-ABBVIE-18K-008-2408746-00

PATIENT
  Sex: Male

DRUGS (1)
  1. HUMIRA [Suspect]
     Active Substance: ADALIMUMAB
     Indication: PSORIASIS
     Route: 058

REACTIONS (5)
  - Vision blurred [Recovered/Resolved]
  - Injection site bruising [Unknown]
  - Facial paresis [Recovered/Resolved]
  - Cerebrovascular accident [Unknown]
  - Hypoaesthesia [Recovered/Resolved]
